FAERS Safety Report 16564467 (Version 1)
Quarter: 2019Q3

REPORT INFORMATION
  Report Type: Spontaneous
  Country: US (occurrence: US)
  Receive Date: 20190711
  Receipt Date: 20190711
  Transmission Date: 20191004
  Serious: No
  Sender: FDA-Public Use
  Company Number: None

PATIENT
  Age: 72 Year
  Sex: Female
  Weight: 66.15 kg

DRUGS (1)
  1. CARVEDILOL 3.125 MG TAB ZYDU [Suspect]
     Active Substance: CARVEDILOL
     Indication: HEART RATE IRREGULAR
     Dosage: ?          QUANTITY:1 TABLET(S);?
     Route: 048
     Dates: start: 20190705

REACTIONS (1)
  - Hot flush [None]

NARRATIVE: CASE EVENT DATE: 20190705
